FAERS Safety Report 10008387 (Version 1)
Quarter: 2014Q1

REPORT INFORMATION
  Report Type: Spontaneous
  Country: US (occurrence: US)
  Receive Date: 20140313
  Receipt Date: 20140313
  Transmission Date: 20141002
  Serious: No
  Sender: FDA-Public Use
  Company Number: US-GILEAD-2013-0075478

PATIENT
  Sex: Female

DRUGS (3)
  1. LETAIRIS [Suspect]
     Indication: PRODUCT USED FOR UNKNOWN INDICATION
     Dosage: 5 MG, QD
     Route: 048
     Dates: start: 20120921, end: 20130508
  2. EPOPROSTENOL [Concomitant]
  3. WARFARIN [Concomitant]

REACTIONS (4)
  - Migraine [Unknown]
  - Somnolence [Unknown]
  - Malaise [Unknown]
  - Fluid retention [Unknown]
